FAERS Safety Report 23037539 (Version 1)
Quarter: 2023Q4

REPORT INFORMATION
  Report Type: Spontaneous
  Country: US (occurrence: US)
  Receive Date: 20231006
  Receipt Date: 20231006
  Transmission Date: 20240109
  Serious: No
  Sender: FDA-Public Use
  Company Number: US-SA-SAC20230929000981

PATIENT
  Age: 47 Year
  Sex: Female
  Weight: 73.4 kg

DRUGS (1)
  1. DUPIXENT [Suspect]
     Active Substance: DUPILUMAB
     Indication: Asthma
     Dosage: DUPIXENT 300 MG/2 ML PEN 2^S FREQUENCY-: EVERY 2 WEEKS
     Route: 058

REACTIONS (2)
  - Cough [Unknown]
  - Hypersensitivity [Unknown]
